FAERS Safety Report 10021073 (Version 1)
Quarter: 2014Q1

REPORT INFORMATION
  Report Type: Spontaneous
  Country: US (occurrence: None)
  Receive Date: 20140318
  Receipt Date: 20140318
  Transmission Date: 20141002
  Serious: Yes (Hospitalization, Disabling, Other)
  Sender: FDA-Public Use
  Company Number: None

PATIENT
  Age: 53 Year
  Sex: Male
  Weight: 77.11 kg

DRUGS (1)
  1. OXYCODONE HCL [Suspect]
     Indication: PAIN
     Dosage: ONE PILL EVERY 12 HOURS. EVERY 12 HOURS TAKEN BY MOUTH
     Route: 048
     Dates: start: 20140314, end: 20140315

REACTIONS (8)
  - Heart rate increased [None]
  - Headache [None]
  - Hypoaesthesia [None]
  - Tinnitus [None]
  - Disturbance in attention [None]
  - Ear pain [None]
  - Sinus headache [None]
  - Condition aggravated [None]
